FAERS Safety Report 5454145-8 (Version None)
Quarter: 2007Q3

REPORT INFORMATION
  Report Type: 
  Country: None (occurrence: None)
  Receive Date: 20070917
  Receipt Date: 20070228
  Transmission Date: 20080115
  Serious: Yes (Other)
  Sender: FDA-Public Use
  Company Number: US-ASTRAZENECA-2006UW11339

PATIENT
  Sex: Female

DRUGS (5)
  1. SEROQUEL [Suspect]
     Indication: BIPOLAR DISORDER
     Route: 048
     Dates: start: 20000101, end: 20061201
  2. GEODON [Concomitant]
  3. HALDOL [Concomitant]
  4. RISPERDAL [Concomitant]
  5. NEURONTIN [Concomitant]

REACTIONS (2)
  - DIABETES MELLITUS [None]
  - SUICIDAL IDEATION [None]
